FAERS Safety Report 6235324-9 (Version None)
Quarter: 2009Q2

REPORT INFORMATION
  Report Type: 
  Country: None (occurrence: None)
  Receive Date: 20090615
  Receipt Date: 20090610
  Transmission Date: 20091009
  Serious: Yes (Death, Other)
  Sender: FDA-Public Use
  Company Number: 2009US001887

PATIENT
  Age: 81 Year
  Sex: Male

DRUGS (3)
  1. AMBISOME [Suspect]
     Indication: FUNGAL INFECTION
     Dosage: 90 MG, UID/QD, IV NOS
     Route: 042
     Dates: start: 20090422, end: 20090429
  2. VANCOMYCIN HYDROCHLORIDE [Concomitant]
  3. MINOCYCLINE HCL [Concomitant]

REACTIONS (3)
  - BLOOD POTASSIUM DECREASED [None]
  - DIARRHOEA [None]
  - RENAL IMPAIRMENT [None]
